FAERS Safety Report 24260715 (Version 1)
Quarter: 2024Q3

REPORT INFORMATION
  Report Type: Spontaneous
  Country: US (occurrence: US)
  Receive Date: 20240828
  Receipt Date: 20240828
  Transmission Date: 20241017
  Serious: No
  Sender: BIOMARIN
  Company Number: US-BIOMARINAP-US-2024-160029

PATIENT

DRUGS (2)
  1. KUVAN [Suspect]
     Active Substance: SAPROPTERIN DIHYDROCHLORIDE
     Indication: Phenylketonuria
     Dosage: 1000 MILLIGRAM, QD
     Route: 048
  2. CIPRODEX [Concomitant]
     Active Substance: CIPROFLOXACIN HYDROCHLORIDE\DEXAMETHASONE
     Indication: Product used for unknown indication

REACTIONS (1)
  - Mood altered [Unknown]
